FAERS Safety Report 10837919 (Version 1)
Quarter: 2015Q1

REPORT INFORMATION
  Report Type: Report from Study
  Country: US (occurrence: US)
  Receive Date: 20150219
  Receipt Date: 20150219
  Transmission Date: 20150721
  Serious: Yes (Hospitalization)
  Sender: FDA-Public Use
  Company Number: US-ABBVIE-14P-163-1231579-00

PATIENT
  Age: 20 Year
  Sex: Female

DRUGS (2)
  1. COUMADIN [Concomitant]
     Active Substance: WARFARIN SODIUM
     Indication: PRODUCT USED FOR UNKNOWN INDICATION
     Dosage: 5MG FOR 3 DAYS A WEEK AND 7.5MG FOR 4 DAYS A WEEK
  2. HUMIRA [Suspect]
     Active Substance: ADALIMUMAB
     Indication: CROHN^S DISEASE
     Dates: start: 201310

REACTIONS (7)
  - Musculoskeletal chest pain [Unknown]
  - Faecal incontinence [Unknown]
  - Pulmonary thrombosis [Not Recovered/Not Resolved]
  - Incorrect product storage [Unknown]
  - Diarrhoea [Unknown]
  - Drug ineffective [Unknown]
  - Therapy change [Unknown]

NARRATIVE: CASE EVENT DATE: 201310
